FAERS Safety Report 7240390-8 (Version None)
Quarter: 2011Q1

REPORT INFORMATION
  Report Type: 
  Country: None (occurrence: None)
  Receive Date: 20110124
  Receipt Date: 20110113
  Transmission Date: 20110831
  Serious: Yes (Life-Threatening)
  Sender: FDA-Public Use
  Company Number: AT-JNJFOC-20110104115

PATIENT
  Age: 32 Year
  Sex: Female
  Weight: 72 kg

DRUGS (5)
  1. CORTISONE [Concomitant]
     Indication: CROHN'S DISEASE
  2. REMICADE [Suspect]
     Indication: CROHN'S DISEASE
     Dosage: 3 INFUSIONS
     Route: 042
  3. REMICADE [Suspect]
     Dosage: 5 INFUSIONS
     Route: 042
  4. CORTISONE [Concomitant]
  5. METHOTREXATE [Concomitant]
     Indication: CROHN'S DISEASE
     Route: 030

REACTIONS (1)
  - COLECTOMY [None]
